FAERS Safety Report 24630989 (Version 1)
Quarter: 2024Q4

REPORT INFORMATION
  Report Type: Spontaneous
  Country: US (occurrence: None)
  Receive Date: 20241116
  Receipt Date: 20241116
  Transmission Date: 20250114
  Serious: No
  Sender: Public
  Company Number: None

PATIENT
  Age: 70 Year
  Sex: Female
  Weight: 63.9 kg

DRUGS (7)
  1. GEMTESA [Suspect]
     Active Substance: VIBEGRON
     Indication: Hypertonic bladder
     Dosage: 1 TABLET AT BEDTIME ORAL
     Route: 048
     Dates: start: 20241114, end: 20241116
  2. LEVOTHYROXINE [Concomitant]
  3. ATENOLOL [Concomitant]
     Active Substance: ATENOLOL
  4. CLONAZEPAM [Concomitant]
  5. AMLODIPINE BESYLATE [Concomitant]
     Active Substance: AMLODIPINE BESYLATE
  6. MELOXICAM [Concomitant]
  7. travoprost drops [Concomitant]

REACTIONS (4)
  - Defaecation urgency [None]
  - Urethral pain [None]
  - Dysuria [None]
  - Therapy cessation [None]

NARRATIVE: CASE EVENT DATE: 20241116
